FAERS Safety Report 7528513-4 (Version None)
Quarter: 2011Q2

REPORT INFORMATION
  Report Type: 
  Country: None (occurrence: None)
  Receive Date: 20110607
  Receipt Date: 20101021
  Transmission Date: 20111010
  Serious: No
  Sender: FDA-Public Use
  Company Number: US-ASTRAZENECA-2010SE50593

PATIENT
  Age: 58 Year
  Sex: Female

DRUGS (1)
  1. PRILOSEC OTC [Suspect]
     Indication: GASTRIC ULCER
     Route: 048
     Dates: start: 20101020, end: 20101020

REACTIONS (1)
  - VISUAL ACUITY REDUCED [None]
